FAERS Safety Report 5593324-6 (Version None)
Quarter: 2008Q1

REPORT INFORMATION
  Report Type: 
  Country: None (occurrence: None)
  Receive Date: 20080116
  Receipt Date: 20080114
  Transmission Date: 20080703
  Serious: Yes (Life-Threatening, Other)
  Sender: FDA-Public Use
  Company Number: B0502589A

PATIENT
  Age: 22 Year
  Sex: Male

DRUGS (1)
  1. MALARONE [Suspect]
     Indication: FOREIGN TRAVEL
     Route: 048
     Dates: start: 20071201

REACTIONS (1)
  - ACUTE RESPIRATORY FAILURE [None]
